FAERS Safety Report 4979652-3 (Version None)
Quarter: 2006Q2

REPORT INFORMATION
  Report Type: 
  Country: None (occurrence: None)
  Receive Date: 20060418
  Receipt Date: 20060404
  Transmission Date: 20061013
  Serious: Yes (Hospitalization)
  Sender: FDA-Public Use
  Company Number: DEU-2006-0002129

PATIENT
  Age: 75 Year
  Sex: Female
  Weight: 90.2 kg

DRUGS (11)
  1. OXY CR TAB 20 MG [Suspect]
     Indication: BACK PAIN
     Dosage: 40 MG, DAILY, ORAL
     Route: 048
     Dates: start: 20060327, end: 20060405
  2. GABAPENTIN [Concomitant]
  3. MOVICOL (SODIUM CHLORIDE, SODIUM BICARBONATE, POTASSIUM MACROGOL) [Concomitant]
  4. ACTONEL [Concomitant]
  5. COLECALCIFEROL (COLECALCIFEROL) [Concomitant]
  6. FUROSEMIDE [Concomitant]
  7. GLYBURIDE [Concomitant]
  8. AMLODIPINE [Concomitant]
  9. SIMVASTATIN [Concomitant]
  10. LORATADINE [Concomitant]
  11. ALLOPURINOL [Concomitant]

REACTIONS (2)
  - FALL [None]
  - HUMERUS FRACTURE [None]
